FAERS Safety Report 5254883-6 (Version None)
Quarter: 2007Q1

REPORT INFORMATION
  Report Type: 
  Country: None (occurrence: None)
  Receive Date: 20070305
  Receipt Date: 20070226
  Transmission Date: 20070707
  Serious: Yes (Disabling, Other)
  Sender: FDA-Public Use
  Company Number: FR-BRISTOL-MYERS SQUIBB COMPANY-13342035

PATIENT
  Age: 46 Year
  Sex: Female

DRUGS (3)
  1. TAXOL [Suspect]
     Indication: BREAST CANCER
     Route: 042
     Dates: start: 20060407, end: 20060407
  2. PAROXETINE HCL [Suspect]
     Indication: ANXIETY
     Route: 048
  3. XANAX [Concomitant]
     Indication: ANXIETY

REACTIONS (2)
  - MACULAR OEDEMA [None]
  - VISUAL ACUITY REDUCED [None]
